FAERS Safety Report 5778758-9 (Version None)
Quarter: 2008Q2

REPORT INFORMATION
  Report Type: 
  Country: None (occurrence: None)
  Receive Date: 20080618
  Receipt Date: 20080618
  Transmission Date: 20081010
  Serious: Yes (Other)
  Sender: FDA-Public Use
  Company Number: None

PATIENT
  Age: 65 Year
  Sex: Male
  Weight: 65.7716 kg

DRUGS (1)
  1. AVELOX [Suspect]
     Indication: ABSCESS
     Dosage: 400 MG ONCE DAILY PO
     Route: 048
     Dates: start: 20080521, end: 20080521

REACTIONS (5)
  - ASTHENIA [None]
  - BLOOD PRESSURE DECREASED [None]
  - BRADYCARDIA [None]
  - HYPERHIDROSIS [None]
  - SYNCOPE [None]
